FAERS Safety Report 5737566-5 (Version None)
Quarter: 2008Q2

REPORT INFORMATION
  Report Type: 
  Country: None (occurrence: None)
  Receive Date: 20080514
  Receipt Date: 20080507
  Transmission Date: 20081010
  Serious: Yes (Hospitalization)
  Sender: FDA-Public Use
  Company Number: PHHY2008ES07336

PATIENT
  Age: 74 Year
  Sex: Female

DRUGS (6)
  1. VOLTAREN [Suspect]
     Indication: OSTEOARTHRITIS
     Dosage: 50 MG TWICE DAILY
     Route: 048
     Dates: start: 20070101
  2. SINTROM [Suspect]
     Indication: MITRAL VALVE REPLACEMENT
     Dosage: 4 MG
     Route: 048
     Dates: start: 20070101
  3. ALDACTONE [Concomitant]
     Indication: ISCHAEMIC CARDIOMYOPATHY
     Dosage: 25 MG/DAY
     Route: 048
  4. OMEPRAZOLE [Concomitant]
     Indication: ISCHAEMIC CARDIOMYOPATHY
     Dosage: 20  MG/DAY
     Route: 048
  5. SEGURIL [Concomitant]
     Indication: ISCHAEMIC CARDIOMYOPATHY
     Dosage: 40 MG/DAY
     Route: 048
  6. RENITEC [Concomitant]
     Indication: HYPERTENSION
     Dosage: 5 MG/DAY
     Route: 048

REACTIONS (2)
  - EROSIVE OESOPHAGITIS [None]
  - GASTRIC HAEMORRHAGE [None]
